FAERS Safety Report 23507688 (Version 1)
Quarter: 2024Q1

REPORT INFORMATION
  Report Type: Spontaneous
  Country: US (occurrence: US)
  Receive Date: 20240209
  Receipt Date: 20240209
  Transmission Date: 20240410
  Serious: No
  Sender: FDA-Public Use
  Company Number: US-Amarin Pharma  Inc-2023AMR000506

PATIENT
  Sex: Female

DRUGS (3)
  1. VASCEPA [Suspect]
     Active Substance: ICOSAPENT ETHYL
     Indication: Product used for unknown indication
     Dosage: 4 CAPSULES, IN ONE TIME
     Route: 065
     Dates: start: 202312, end: 202312
  2. VASCEPA [Suspect]
     Active Substance: ICOSAPENT ETHYL
     Dosage: 4 CAPSULES ALTERNATIVE DAYS
     Route: 065
     Dates: start: 202312
  3. VASCEPA [Suspect]
     Active Substance: ICOSAPENT ETHYL
     Dates: end: 202312

REACTIONS (3)
  - Formication [Not Recovered/Not Resolved]
  - Peripheral coldness [Not Recovered/Not Resolved]
  - Inappropriate schedule of product administration [Unknown]

NARRATIVE: CASE EVENT DATE: 20230101
